FAERS Safety Report 17194129 (Version 1)
Quarter: 2019Q4

REPORT INFORMATION
  Report Type: Spontaneous
  Country: SE (occurrence: SE)
  Receive Date: 20191224
  Receipt Date: 20191224
  Transmission Date: 20200122
  Serious: Yes (Hospitalization)
  Sender: FDA-Public Use
  Company Number: SE-TEVA-2019-SE-1155466

PATIENT
  Sex: Male

DRUGS (3)
  1. RISPERIDONE. [Suspect]
     Active Substance: RISPERIDONE
     Dosage: 40 ST AT 0.5 MG  (UNIT DOSE: 20 MG)
     Route: 048
     Dates: start: 20181001, end: 20181001
  2. PROPAVAN [Suspect]
     Active Substance: PROPIOMAZINE
     Dosage: 30 ST
     Route: 048
     Dates: start: 20181001, end: 20181001
  3. THERALEN [Suspect]
     Active Substance: TRIMEPRAZINE
     Dosage: ^CA 5X 100 MG THERALEN^  (500 MG)
     Route: 048
     Dates: start: 20181001, end: 20181001

REACTIONS (2)
  - Intentional overdose [Unknown]
  - Intentional self-injury [Unknown]

NARRATIVE: CASE EVENT DATE: 20181001
